FAERS Safety Report 7673676-3 (Version None)
Quarter: 2011Q3

REPORT INFORMATION
  Report Type: 
  Country: None (occurrence: None)
  Receive Date: 20110810
  Receipt Date: 20110726
  Transmission Date: 20111222
  Serious: Yes (Other)
  Sender: FDA-Public Use
  Company Number: US-TYCO HEALTHCARE/MALLINCKRODT-T201101486

PATIENT
  Sex: Female
  Weight: 86.168 kg

DRUGS (12)
  1. CLONAZEPAM [Concomitant]
     Indication: NERVOUSNESS
  2. VIMOVO [Concomitant]
     Indication: ARTHRITIS
     Dosage: 500/20
     Route: 048
  3. CELEXA [Concomitant]
     Indication: DEPRESSION
     Dosage: 40 MG, QD
     Route: 048
     Dates: end: 20110701
  4. FISH OIL [Concomitant]
     Dosage: UNK
     Route: 048
  5. MORPHINE [Suspect]
     Dosage: 600 MG PER DAY
     Route: 048
     Dates: start: 20090101
  6. ESTRADIOL [Concomitant]
     Indication: HYPERTENSION
     Dosage: 1 MG, QD
     Route: 048
     Dates: end: 20110701
  7. CELEBREX [Concomitant]
     Indication: ARTHRITIS
     Dosage: 40 MG, QD
     Route: 048
  8. CLONAZEPAM [Concomitant]
     Indication: TENSION
     Dosage: 1 MG, QD
     Route: 048
  9. ASPIRIN [Concomitant]
     Dosage: UNK
     Route: 048
  10. LORTAB [Concomitant]
     Indication: BREAKTHROUGH PAIN
     Dosage: 10/500
  11. METFORMIN HCL [Concomitant]
     Indication: DIABETES MELLITUS
     Dosage: 500 MG, BID
     Route: 048
  12. MORPHINE [Suspect]
     Indication: PAIN
     Dosage: 200 MG PER DAY
     Dates: start: 20110601, end: 20110701

REACTIONS (6)
  - FORMICATION [None]
  - WITHDRAWAL SYNDROME [None]
  - MALAISE [None]
  - DEPRESSED MOOD [None]
  - INTENTIONAL DRUG MISUSE [None]
  - SUICIDAL IDEATION [None]
